FAERS Safety Report 9765159 (Version 1)
Quarter: 2013Q4

REPORT INFORMATION
  Report Type: Spontaneous
  Country: US (occurrence: None)
  Receive Date: 20131216
  Receipt Date: 20131216
  Transmission Date: 20140711
  Serious: Yes (Other)
  Sender: FDA-Public Use
  Company Number: None

PATIENT
  Age: 9 Year
  Sex: Male
  Weight: 28.58 kg

DRUGS (1)
  1. NEXIUM [Suspect]
     Indication: GASTROOESOPHAGEAL REFLUX DISEASE
     Dosage: 1/2 PACKET ORAL SUSPENSION 1 DOSE ONCE TAKEN BY MOUTH
     Dates: start: 20131212, end: 20131212

REACTIONS (2)
  - Sleep terror [None]
  - Hallucinations, mixed [None]
